FAERS Safety Report 23543969 (Version 1)
Quarter: 2024Q1

REPORT INFORMATION
  Report Type: Spontaneous
  Country: US (occurrence: None)
  Receive Date: 20240216
  Receipt Date: 20240216
  Transmission Date: 20240410
  Serious: Yes (Other)
  Sender: FDA-Public Use
  Company Number: None

PATIENT
  Age: 45 Year
  Sex: Female
  Weight: 112.5 kg

DRUGS (1)
  1. COMPAZINE [Suspect]
     Active Substance: PROCHLORPERAZINE MALEATE
     Indication: Migraine
     Route: 042
     Dates: start: 20240214, end: 20240214

REACTIONS (6)
  - Tremor [None]
  - Insomnia [None]
  - Agitation [None]
  - Anxiety [None]
  - Confusional state [None]
  - Formication [None]

NARRATIVE: CASE EVENT DATE: 20240214
